FAERS Safety Report 14937669 (Version 4)
Quarter: 2021Q2

REPORT INFORMATION
  Report Type: Report from Study
  Country: CA (occurrence: CA)
  Receive Date: 20180525
  Receipt Date: 20210405
  Transmission Date: 20210716
  Serious: Yes (Hospitalization, Other)
  Sender: FDA-Public Use
  Company Number: PHHY2018CA006066

PATIENT
  Age: 39 Year
  Sex: Male

DRUGS (5)
  1. ILARIS [Suspect]
     Active Substance: CANAKINUMAB
     Dosage: 150 MG, EVERY 8 WEEKS
     Route: 058
     Dates: start: 20180906
  2. ILARIS [Suspect]
     Active Substance: CANAKINUMAB
     Indication: MUCKLE-WELLS SYNDROME
     Dosage: 150 MG, EVERY 8 WEEKS
     Route: 058
     Dates: start: 20140630
  3. ILARIS [Suspect]
     Active Substance: CANAKINUMAB
     Dosage: UNK
     Route: 065
     Dates: start: 20200513
  4. ILARIS [Suspect]
     Active Substance: CANAKINUMAB
     Dosage: 150 MG, UNK
     Route: 058
     Dates: start: 20180320
  5. ILARIS [Suspect]
     Active Substance: CANAKINUMAB
     Dosage: UNK
     Route: 065
     Dates: start: 20210217

REACTIONS (17)
  - Pyrexia [Recovered/Resolved]
  - Eating disorder [Unknown]
  - Decreased appetite [Unknown]
  - Blood pressure diastolic increased [Unknown]
  - Myalgia [Recovered/Resolved]
  - Ocular hyperaemia [Recovered/Resolved]
  - Oral herpes [Recovered/Resolved]
  - Headache [Recovered/Resolved]
  - Appendicitis [Recovered/Resolved]
  - Chills [Recovered/Resolved]
  - Stress [Unknown]
  - Fatigue [Recovered/Resolved]
  - Abdominal pain [Unknown]
  - Deafness [Recovered/Resolved]
  - Nasal congestion [Unknown]
  - Urticaria [Recovered/Resolved]
  - Arthralgia [Recovered/Resolved]

NARRATIVE: CASE EVENT DATE: 2018
